FAERS Safety Report 5046615-1 (Version None)
Quarter: 2006Q3

REPORT INFORMATION
  Report Type: 
  Country: None (occurrence: None)
  Receive Date: 20060707
  Receipt Date: 20060707
  Transmission Date: 20061208
  Serious: Yes (Hospitalization)
  Sender: FDA-Public Use
  Company Number: None

PATIENT
  Age: 57 Year
  Sex: Male

DRUGS (19)
  1. OXCARBAZEPINE [Suspect]
     Indication: CONVULSION
     Dosage: 600 MG PO QAM AND 900 MG QPM PO
     Route: 048
     Dates: start: 20041004, end: 20060613
  2. OXCARBAZEPINE [Suspect]
     Indication: DEMYELINATION
     Dosage: 600 MG PO QAM AND 900 MG QPM PO
     Route: 048
     Dates: start: 20041004, end: 20060613
  3. FOSPHENYTOIN SODIUM [Suspect]
     Indication: CONVULSION
     Dosage: 1500 MG IV ONE IV
     Route: 042
     Dates: start: 20060513, end: 20060513
  4. FOSPHENYTOIN SODIUM [Suspect]
     Indication: DEMYELINATION
     Dosage: 1500 MG IV ONE IV
     Route: 042
     Dates: start: 20060513, end: 20060513
  5. ENALAPRIL MALEATE [Concomitant]
  6. FELODIPINE [Concomitant]
  7. ADVAIR DISKUS 100/50 [Concomitant]
  8. ALBUTEROL SPIROS [Concomitant]
  9. AZITHROMYCIN DOSEPAK [Concomitant]
  10. GATIFLOXACIN [Concomitant]
  11. TRIAMTERENE AND HYDROCHLOROTHIAZIDE [Concomitant]
  12. LEVALBUTEROL HCL [Concomitant]
  13. METOPROLOL TARTRATE [Concomitant]
  14. OMEPRAZOLE [Concomitant]
  15. TRILEPTAL [Concomitant]
  16. PREDNISONE TAPER [Concomitant]
  17. SIMVASTATIN [Concomitant]
  18. TIOTROPIUM [Concomitant]
  19. TRAMADOL HCL [Concomitant]

REACTIONS (8)
  - AGITATION [None]
  - BRADYCARDIA [None]
  - CONFUSIONAL STATE [None]
  - GRAND MAL CONVULSION [None]
  - HYPONATRAEMIA [None]
  - LOSS OF CONSCIOUSNESS [None]
  - NAUSEA [None]
  - SIMPLE PARTIAL SEIZURES [None]
